FAERS Safety Report 8018499-0 (Version None)
Quarter: 2012Q1

REPORT INFORMATION
  Report Type: 
  Country: None (occurrence: None)
  Receive Date: 20120103
  Receipt Date: 20111226
  Transmission Date: 20120608
  Serious: Yes (Other)
  Sender: FDA-Public Use
  Company Number: FR-BAYER-2011-123671

PATIENT
  Age: 37 Year
  Sex: Female

DRUGS (7)
  1. MIRENA [Suspect]
     Indication: CONTRACEPTION
     Dosage: UNK
     Route: 015
  2. SPECIAFOLDINE [Concomitant]
     Indication: SARCOIDOSIS
     Dosage: UNK
     Route: 048
  3. NEXIUM [Concomitant]
     Dosage: 20 MG, UNK
     Route: 048
     Dates: start: 20090101
  4. AMITRIPTYLINE HCL [Concomitant]
     Indication: MIGRAINE
     Dosage: 8 DF, HS
     Route: 048
     Dates: start: 20090101, end: 20110901
  5. PROTELOS [Suspect]
     Indication: SARCOIDOSIS
     Dosage: 2 G, QD
     Route: 048
     Dates: start: 20100201, end: 20110101
  6. PREDNISOLONE [Concomitant]
     Indication: SARCOIDOSIS
     Dosage: 15 MG, QD
     Route: 048
     Dates: start: 20050101
  7. METHOTREXATE [Concomitant]
     Indication: SARCOIDOSIS
     Dosage: 10 MG, OW
     Route: 048
     Dates: start: 20050101

REACTIONS (10)
  - VERTIGO [None]
  - FAECAL INCONTINENCE [None]
  - PALPITATIONS [None]
  - URINARY INCONTINENCE [None]
  - VISION BLURRED [None]
  - EPILEPSY [None]
  - INSOMNIA [None]
  - HYPOTONIA [None]
  - MALAISE [None]
  - ASTHENIA [None]
